FAERS Safety Report 6398850-8 (Version None)
Quarter: 2009Q4

REPORT INFORMATION
  Report Type: 
  Country: None (occurrence: None)
  Receive Date: 20091007
  Receipt Date: 20090930
  Transmission Date: 20100525
  Serious: Yes (Death, Other)
  Sender: FDA-Public Use
  Company Number: 2008JP005607

PATIENT
  Age: 71 Year
  Sex: Male
  Weight: 61 kg

DRUGS (5)
  1. PROGRAF [Suspect]
     Indication: RHEUMATOID ARTHRITIS
     Dosage: 3 MG, /D, ORAL
     Route: 048
  2. PREDNISOLONE [Concomitant]
  3. ETODOLAC [Concomitant]
  4. BUCILLAMINE (BUCILLAMINE) [Concomitant]
  5. SALAZOSULFAPYRIDINE [Concomitant]

REACTIONS (8)
  - ANAEMIA [None]
  - CHOLELITHIASIS [None]
  - GASTRIC CANCER [None]
  - HAEMORRHAGE [None]
  - METASTASES TO BONE [None]
  - METASTASES TO LUNG [None]
  - METASTASES TO STOMACH [None]
  - TACHYCARDIA [None]
